FAERS Safety Report 10268770 (Version 1)
Quarter: 2014Q2

REPORT INFORMATION
  Report Type: Spontaneous
  Country: IT (occurrence: IT)
  Receive Date: 20140630
  Receipt Date: 20140630
  Transmission Date: 20141212
  Serious: Yes (Other)
  Sender: FDA-Public Use
  Company Number: IT-ACTAVIS-2013B-00448

PATIENT
  Age: 63 Year
  Sex: Female

DRUGS (1)
  1. GEMCITABINE (UNKNOWN) [Suspect]
     Indication: PLEURAL MESOTHELIOMA
     Dosage: 2000 MG, CYCLICAL
     Route: 042
     Dates: start: 20130515, end: 20130605

REACTIONS (2)
  - Neutropenia [Unknown]
  - Dysgeusia [Unknown]
